FAERS Safety Report 14693997 (Version 11)
Quarter: 2024Q1

REPORT INFORMATION
  Report Type: Spontaneous
  Country: US (occurrence: US)
  Receive Date: 20180329
  Receipt Date: 20240314
  Transmission Date: 20240409
  Serious: Yes (Other)
  Sender: FDA-Public Use
  Company Number: US-PFIZER INC-2018128432

PATIENT
  Age: 67 Year
  Sex: Female
  Weight: 80.726 kg

DRUGS (2)
  1. XELJANZ XR [Suspect]
     Active Substance: TOFACITINIB CITRATE
     Indication: Rheumatoid arthritis
     Dosage: 11 MG, DAILY (30 TAB BOTTLE)
     Route: 048
     Dates: start: 2013
  2. XELJANZ XR [Suspect]
     Active Substance: TOFACITINIB CITRATE
     Dosage: 11 MG

REACTIONS (12)
  - Pneumonia [Unknown]
  - Malaise [Not Recovered/Not Resolved]
  - Pain [Not Recovered/Not Resolved]
  - Nasopharyngitis [Unknown]
  - Hypersensitivity [Unknown]
  - Peripheral swelling [Unknown]
  - Condition aggravated [Unknown]
  - Mobility decreased [Unknown]
  - Finger deformity [Unknown]
  - Pain in extremity [Unknown]
  - Illness [Unknown]
  - Confusional state [Unknown]
